FAERS Safety Report 8803251 (Version 2)
Quarter: 2013Q1

REPORT INFORMATION
  Report Type: Spontaneous
  Country: FR (occurrence: FR)
  Receive Date: 20120924
  Receipt Date: 20130124
  Transmission Date: 20140127
  Serious: Yes (Death, Hospitalization)
  Sender: FDA-Public Use
  Company Number: FR-UCBSA-066365

PATIENT
  Age: 77 Year
  Sex: Female

DRUGS (7)
  1. KEPPRA [Suspect]
     Indication: PROPHYLAXIS
     Route: 048
     Dates: start: 201205, end: 2012
  2. KEPPRA [Suspect]
     Indication: PROPHYLAXIS
     Route: 048
     Dates: start: 20120715, end: 20120827
  3. BACTRIM [Suspect]
     Dosage: DAILY DOSE: 1 UNIT
     Route: 048
     Dates: start: 20120801, end: 20120828
  4. CORTANCYL [Suspect]
     Indication: LUNG DISORDER
     Dosage: 40 MG
     Route: 048
     Dates: start: 201207
  5. TAHOR [Suspect]
     Dosage: DAILY DOSE :10 MG
     Route: 048
     Dates: end: 20120827
  6. AUGMENTIN [Suspect]
     Route: 048
     Dates: start: 20120809, end: 20120813
  7. METHYLPREDNISOLONE [Concomitant]
     Indication: LUNG DISORDER
     Dosage: 3 BOLUS
     Dates: start: 20120710

REACTIONS (2)
  - Respiratory tract infection [Fatal]
  - Mixed liver injury [Not Recovered/Not Resolved]
